FAERS Safety Report 6597737-5 (Version None)
Quarter: 2010Q1

REPORT INFORMATION
  Report Type: 
  Country: None (occurrence: None)
  Receive Date: 20100216
  Receipt Date: 20100202
  Transmission Date: 20100710
  Serious: No
  Sender: FDA-Public Use
  Company Number: B0632329B

PATIENT
  Sex: Female

DRUGS (5)
  1. COMBIVIR [Suspect]
     Indication: ANTIVIRAL PROPHYLAXIS
     Dosage: 1 TABLET / TWICE PER DAY/ TRANSPLACEN
     Route: 064
  2. LOPINAVIR AND RITONAVIR [Suspect]
     Indication: ANTIVIRAL PROPHYLAXIS
     Dosage: 3 TABLET / TWICE PER DAY / TRANSPLACEN
     Route: 064
  3. NELFINAVIR MESYLATE [Suspect]
     Indication: ANTIVIRAL PROPHYLAXIS
     Dosage: 625 NG/ FOUR TIMES PER DAY / TRANSP
     Route: 064
  4. LOPINAVIR AND RITONAVIR [Suspect]
     Indication: ANTIVIRAL PROPHYLAXIS
     Dosage: TWICE PER DAY / ORAL
     Route: 048
  5. ZIDOVUDINE [Concomitant]

REACTIONS (22)
  - AORTIC VALVE INCOMPETENCE [None]
  - ATRIOVENTRICULAR BLOCK FIRST DEGREE [None]
  - ATRIOVENTRICULAR DISSOCIATION [None]
  - BUNDLE BRANCH BLOCK LEFT [None]
  - BUNDLE BRANCH BLOCK RIGHT [None]
  - CAESAREAN SECTION [None]
  - CARDIAC FAILURE [None]
  - CARDIO-RESPIRATORY ARREST [None]
  - CONGESTIVE CARDIOMYOPATHY [None]
  - ELECTROCARDIOGRAM ST SEGMENT ABNORMAL [None]
  - FOETAL HEART RATE DECELERATION [None]
  - MATERNAL DRUGS AFFECTING FOETUS [None]
  - MITRAL VALVE INCOMPETENCE [None]
  - NODAL RHYTHM [None]
  - PREMATURE BABY [None]
  - PULMONARY HAEMORRHAGE [None]
  - PULMONARY VALVE INCOMPETENCE [None]
  - RENAL FAILURE ACUTE [None]
  - RESPIRATORY FAILURE [None]
  - SINUS BRADYCARDIA [None]
  - TRICUSPID VALVE INCOMPETENCE [None]
  - TWIN PREGNANCY [None]
